FAERS Safety Report 11018132 (Version 2)
Quarter: 2015Q2

REPORT INFORMATION
  Report Type: Spontaneous
  Country: US (occurrence: US)
  Receive Date: 20150412
  Receipt Date: 20150524
  Transmission Date: 20150821
  Serious: Yes (Hospitalization)
  Sender: FDA-Public Use
  Company Number: US-JNJFOC-20130101515

PATIENT
  Age: 48 Year
  Sex: Female
  Weight: 98.43 kg

DRUGS (7)
  1. EC145 [Suspect]
     Active Substance: VINTAFOLIDE
     Indication: OVARIAN CANCER
     Dosage: ON DAYS 1, 3, 5, 15, 17 AND 19 OF A 4 WEEK CYCLE
     Route: 042
     Dates: start: 20121119
  2. UNKNOWN MEDICATION [Suspect]
     Active Substance: UNSPECIFIED INGREDIENT
     Indication: RADIOISOTOPE SCAN
     Route: 042
     Dates: start: 20121101, end: 20121101
  3. COUMADIN [Concomitant]
     Active Substance: WARFARIN SODIUM
     Indication: PRODUCT USED FOR UNKNOWN INDICATION
     Route: 065
  4. PLACEBO [Suspect]
     Active Substance: UNSPECIFIED INGREDIENT
     Indication: OVARIAN CANCER
     Dosage: ON DAYS 1, 3, 5, 15, 17 AND 19 OF A 4 WEEK CYCLE
     Route: 042
     Dates: start: 20121119
  5. ZOFRAN [Concomitant]
     Active Substance: ONDANSETRON HYDROCHLORIDE
     Indication: PRODUCT USED FOR UNKNOWN INDICATION
     Route: 065
  6. HYDROCODONE [Concomitant]
     Active Substance: HYDROCODONE
     Indication: PRODUCT USED FOR UNKNOWN INDICATION
     Route: 065
  7. DOXIL [Suspect]
     Active Substance: DOXORUBICIN HYDROCHLORIDE
     Indication: OVARIAN CANCER
     Route: 042
     Dates: start: 20121119

REACTIONS (2)
  - Dyspnoea [Not Recovered/Not Resolved]
  - Anaemia [Not Recovered/Not Resolved]

NARRATIVE: CASE EVENT DATE: 20121227
